FAERS Safety Report 15149332 (Version 3)
Quarter: 2018Q3

REPORT INFORMATION
  Report Type: Spontaneous
  Country: LV (occurrence: LV)
  Receive Date: 20180716
  Receipt Date: 20180716
  Transmission Date: 20181010
  Serious: Yes (Hospitalization)
  Sender: FDA-Public Use
  Company Number: PHHY2018LV045109

PATIENT
  Age: 17 Year
  Sex: Female
  Weight: 60 kg

DRUGS (1)
  1. DICLOFENAC [Suspect]
     Active Substance: DICLOFENAC
     Indication: PAIN IN EXTREMITY
     Dosage: 75 MG, 1 TOTAL
     Route: 030
     Dates: start: 20180409

REACTIONS (2)
  - Loss of consciousness [Recovered/Resolved]
  - Concussion [Recovering/Resolving]

NARRATIVE: CASE EVENT DATE: 20180409
